FAERS Safety Report 24303782 (Version 2)
Quarter: 2024Q4

REPORT INFORMATION
  Report Type: Spontaneous
  Country: JP (occurrence: JP)
  Receive Date: 20240910
  Receipt Date: 20241226
  Transmission Date: 20250114
  Serious: Yes (Hospitalization)
  Sender: AMGEN
  Company Number: JP-AMGEN-JPNSP2024176433

PATIENT
  Age: 74 Year
  Sex: Male

DRUGS (6)
  1. EVENITY [Suspect]
     Active Substance: ROMOSOZUMAB-AQQG
     Indication: Osteoporosis
     Dosage: 210 MILLIGRAM
     Route: 058
     Dates: start: 20240621
  2. FUROSEMIDE [Concomitant]
     Active Substance: FUROSEMIDE
     Dosage: UNK
  3. LANSOPRAZOLE [Concomitant]
     Active Substance: LANSOPRAZOLE
     Dosage: UNK
  4. POLAPREZINC [Concomitant]
     Active Substance: POLAPREZINC
     Dosage: UNK
  5. FOLIC ACID [Concomitant]
     Active Substance: FOLIC ACID
     Dosage: UNK
  6. DULOXETINE [Concomitant]
     Active Substance: DULOXETINE
     Dosage: UNK

REACTIONS (2)
  - Femoral neck fracture [Unknown]
  - Fracture [Unknown]
